FAERS Safety Report 24580055 (Version 1)
Quarter: 2024Q4

REPORT INFORMATION
  Report Type: Spontaneous
  Country: US (occurrence: None)
  Receive Date: 20241104
  Receipt Date: 20241104
  Transmission Date: 20250114
  Serious: Yes (Life-Threatening, Hospitalization)
  Sender: Public
  Company Number: None

PATIENT
  Age: 85 Year
  Sex: Male
  Weight: 161 kg

DRUGS (2)
  1. METOLAZONE [Suspect]
     Active Substance: METOLAZONE
     Indication: Hypertension
     Dosage: FREQUENCY : TWICE A DAY;?
     Route: 048
     Dates: start: 20240703
  2. TORSEMIDE [Suspect]
     Active Substance: TORSEMIDE
     Indication: Hypertension
     Dosage: FREQUENCY : TWICE A DAY;?
     Route: 048
     Dates: start: 20240703

REACTIONS (7)
  - Polyuria [None]
  - Abdominal pain [None]
  - Constipation [None]
  - Blood bicarbonate abnormal [None]
  - Alkalosis hypochloraemic [None]
  - Hypokalaemia [None]
  - Confusional state [None]

NARRATIVE: CASE EVENT DATE: 20240715
